FAERS Safety Report 13592544 (Version 2)
Quarter: 2017Q2

REPORT INFORMATION
  Report Type: Spontaneous
  Country: NL (occurrence: NL)
  Receive Date: 20170530
  Receipt Date: 20170606
  Transmission Date: 20170830
  Serious: Yes (Other)
  Sender: FDA-Public Use
  Company Number: NL-BAYER-2017-098036

PATIENT
  Age: 23 Year
  Sex: Female
  Weight: 96 kg

DRUGS (2)
  1. ACETYLSALICYLIC ACID (} 100 MG) [Suspect]
     Active Substance: ASPIRIN
     Indication: PROPHYLAXIS
     Dosage: 80 MG, QD
     Route: 048
     Dates: start: 20170507
  2. FRAGMIN [DALTEPARIN SODIUM] [Concomitant]
     Dosage: UNK
     Route: 058

REACTIONS (1)
  - Abortion spontaneous [Unknown]
